FAERS Safety Report 9773720 (Version 1)
Quarter: 2013Q4

REPORT INFORMATION
  Report Type: Spontaneous
  Country: IT (occurrence: None)
  Receive Date: 20131218
  Receipt Date: 20131218
  Transmission Date: 20140711
  Serious: Yes (Hospitalization)
  Sender: FDA-Public Use
  Company Number: 2013STPI000511

PATIENT
  Age: 42 Year
  Sex: Female
  Weight: 76 kg

DRUGS (20)
  1. MATULANE (PROCARBAZINE HYDROCHLORIDE) CAPSULE, 50MG [Suspect]
     Indication: HODGKIN^S DISEASE
     Route: 048
     Dates: start: 20131111, end: 20131111
  2. FLUCTINE [Suspect]
     Indication: DEPRESSION
     Dates: start: 201302, end: 20131112
  3. PASPERTIN [Suspect]
     Indication: NAUSEA
     Route: 048
     Dates: start: 20131111, end: 20131113
  4. PASPERTIN [Suspect]
     Indication: VOMITING
     Route: 048
     Dates: start: 20131111, end: 20131113
  5. KYTRIL (GRANISETRON HYDROCHLORIDE) [Concomitant]
  6. BACTRIM [Concomitant]
  7. BISOPROLOL FUMARATE (BISOPROLOL FUMARATE) [Concomitant]
  8. DEXAMETHASONE (DEXAMETHASONE SODIUM PHOSPHATE) [Concomitant]
  9. ESOMEPRAZOLE (ESOMEPRAZOLE MAGNESIUM) [Concomitant]
  10. PREDNISOLONE (PREDNISOLONE SODIUM PHOSPHATE) [Concomitant]
  11. VALACICLOVIR HYDROCHLORIDE (VALACICLOVIR HYDROCHLORIDE) [Concomitant]
  12. ALLOPURINOL (ALLOPURINOL SODIUM) [Concomitant]
  13. HEPARIN-FRACTION, SODIUM SALT (HEPARIN-FRACTION, SODIUM SALT) [Concomitant]
  14. INSULIN LISPRO (INSULIN LISPRO) [Concomitant]
  15. INSULIN HUMAN INJECTION, ISOPHANE (INSULIN HUMAN INJECTION, ISOPHANE) [Concomitant]
  16. DOXORUBICIN (DOXORUBICIN HYDROCHLORIDE) [Concomitant]
  17. MESNA [Concomitant]
  18. CYCLOPHOSPHAMIDE MONOHYDRATE (CYCLOPHOSPHAMIDE MONOHYDRATE) [Concomitant]
  19. ETOPOSIDE PHOSPHATE (ETOPOSIDE PHOSPHATE) [Concomitant]
  20. DOSPIR (IPRATROPIUM BROMIDE, SALBUTAMOL SULFATE) [Concomitant]

REACTIONS (2)
  - Serotonin syndrome [None]
  - Drug interaction [None]
